FAERS Safety Report 14009080 (Version 27)
Quarter: 2020Q2

REPORT INFORMATION
  Report Type: Spontaneous
  Country: CA (occurrence: CA)
  Receive Date: 20170925
  Receipt Date: 20200626
  Transmission Date: 20200713
  Serious: Yes (Hospitalization, Other)
  Sender: FDA-Public Use
  Company Number: CA-CELLTRION INC.-2017CA012486

PATIENT

DRUGS (34)
  1. INFLECTRA [Suspect]
     Active Substance: INFLIXIMAB-DYYB
     Dosage: 420MG (5 MG/KG)  EVERY 4 WEEKS
     Route: 042
     Dates: start: 20180905, end: 20180905
  2. INFLECTRA [Suspect]
     Active Substance: INFLIXIMAB-DYYB
     Dosage: 420MG (5 MG/KG)  EVERY 4 WEEKS
     Route: 042
     Dates: start: 20190809, end: 20190809
  3. INFLECTRA [Suspect]
     Active Substance: INFLIXIMAB-DYYB
     Dosage: 500MG  EVERY 4 WEEKS
     Route: 042
     Dates: start: 20191002, end: 20191002
  4. INFLECTRA [Suspect]
     Active Substance: INFLIXIMAB-DYYB
     Dosage: 5 MG/KG (500 MG), EVERY 4 WEEKS
     Route: 042
     Dates: start: 20200404
  5. CORTIFOAM [Concomitant]
     Active Substance: HYDROCORTISONE ACETATE
     Indication: PAIN
  6. INFLECTRA [Suspect]
     Active Substance: INFLIXIMAB-DYYB
     Indication: CROHN^S DISEASE
     Dosage: 600 MG, (EVERY 4 WEEKS)
     Route: 042
     Dates: start: 20170206, end: 20180711
  7. INFLECTRA [Suspect]
     Active Substance: INFLIXIMAB-DYYB
     Dosage: 420MG (5 MG/KG)  EVERY 4 WEEKS
     Route: 042
     Dates: start: 20181128, end: 20181128
  8. INFLECTRA [Suspect]
     Active Substance: INFLIXIMAB-DYYB
     Dosage: 500MG,  6 WEEKS AND 2 DAYS
     Route: 042
     Dates: start: 20191115, end: 20191115
  9. INFLECTRA [Suspect]
     Active Substance: INFLIXIMAB-DYYB
     Dosage: 5 MG/KG (500 MG), EVERY 4 WEEKS
     Route: 042
     Dates: start: 20200428
  10. CORTIFOAM [Concomitant]
     Active Substance: HYDROCORTISONE ACETATE
     Indication: ABDOMINAL PAIN
     Dosage: UNK, TWICE A DAY
     Route: 054
  11. INFLECTRA [Suspect]
     Active Substance: INFLIXIMAB-DYYB
     Dosage: 420MG (5 MG/KG)  EVERY 4 WEEKS
     Route: 042
     Dates: start: 20190219, end: 20190219
  12. INFLECTRA [Suspect]
     Active Substance: INFLIXIMAB-DYYB
     Dosage: 5 MG/KG (500 MG), EVERY 4 WEEKS
     Route: 042
     Dates: start: 20200619
  13. LAX-A-DAY [Concomitant]
     Dosage: HALF PACK, ONCE A DAY
     Route: 065
  14. HYDROCHLOROTHIAZIDE. [Concomitant]
     Active Substance: HYDROCHLOROTHIAZIDE
     Dosage: 2.5 MG, 1X/DAY
     Route: 048
  15. INFLECTRA [Suspect]
     Active Substance: INFLIXIMAB-DYYB
     Dosage: 500MG (5 MG/KG)  EVERY 4 WEEKS
     Route: 042
     Dates: start: 20190710, end: 20190710
  16. GABAPENTIN. [Concomitant]
     Active Substance: GABAPENTIN
     Dosage: 1.8 MG, 2 TABLETS AM; 1 TABLET PM, 3 TABLETS AT BEDTIME
     Route: 048
  17. INFLECTRA [Suspect]
     Active Substance: INFLIXIMAB-DYYB
     Dosage: 5 MG/KG (500 MG), EVERY 4 WEEKS
     Route: 042
     Dates: start: 20200110, end: 20200110
  18. INFLECTRA [Suspect]
     Active Substance: INFLIXIMAB-DYYB
     Dosage: 5 MG/KG (500 MG), EVERY 4 WEEKS
     Route: 042
     Dates: start: 20200306, end: 20200306
  19. LEVOTHYROXINE. [Concomitant]
     Active Substance: LEVOTHYROXINE
     Dosage: 0.05 MG, 1X/DAY
     Route: 048
  20. MODULON [Concomitant]
     Active Substance: TRIMEBUTINE MALEATE
     Dosage: 150 MG, 1X/DAY
     Route: 048
  21. ZOPICLONE [Concomitant]
     Active Substance: ZOPICLONE
     Dosage: 7.5 MG, AT BEDTIME
     Route: 048
  22. ACETAMINOPHEN. [Concomitant]
     Active Substance: ACETAMINOPHEN
     Indication: PREMEDICATION
     Dosage: 650 MG, UNK
     Dates: start: 20190809, end: 20190809
  23. INFLECTRA [Suspect]
     Active Substance: INFLIXIMAB-DYYB
     Dosage: 420MG (5MG/KG), EVERY 4 WEEKS
     Route: 042
     Dates: start: 20180808, end: 20180808
  24. INFLECTRA [Suspect]
     Active Substance: INFLIXIMAB-DYYB
     Dosage: 420MG (5 MG/KG)  EVERY 4 WEEKS
     Route: 042
     Dates: start: 20180808, end: 20190611
  25. VENLAFAXINE [Concomitant]
     Active Substance: VENLAFAXINE HYDROCHLORIDE
     Dosage: 100 MG, 1X/DAY
     Route: 048
  26. HYDROMORPHONE [Concomitant]
     Active Substance: HYDROMORPHONE
     Dosage: 0.5 MG, 3-4 TIMES A WEEK
     Route: 065
  27. RANITIDINE. [Concomitant]
     Active Substance: RANITIDINE
     Indication: ABSCESS
     Dosage: 150 MG, 1X/DAY
     Route: 048
  28. METHOTREXATE. [Concomitant]
     Active Substance: METHOTREXATE
     Dosage: 15 MG, WEEKLY
     Route: 048
     Dates: start: 20170913
  29. INFLECTRA [Suspect]
     Active Substance: INFLIXIMAB-DYYB
     Dosage: 420MG (5 MG/KG)  EVERY 4 WEEKS
     Route: 042
     Dates: start: 20190122, end: 20190122
  30. HYDROMORPHONE [Concomitant]
     Active Substance: HYDROMORPHONE
     Indication: ABDOMINAL PAIN
     Dosage: 0.5 MG, 3-4 TIMES A WEEK, AS NEEDED
     Route: 065
  31. MODULON [Concomitant]
     Active Substance: TRIMEBUTINE MALEATE
     Dosage: 1 DF(TABLET), 2X/DAY
     Route: 048
  32. HYDROCORTISONE. [Concomitant]
     Active Substance: HYDROCORTISONE
     Indication: PREMEDICATION
     Dosage: 100 MG, UNK
     Route: 042
     Dates: start: 20190809, end: 20190809
  33. INFLECTRA [Suspect]
     Active Substance: INFLIXIMAB-DYYB
     Dosage: 5 MG/KG (500 MG), EVERY 4 WEEKS
     Route: 042
     Dates: start: 20200207, end: 20200207
  34. FOLIC ACID. [Concomitant]
     Active Substance: FOLIC ACID
     Dosage: UNK, 6 DAYS A WEEK

REACTIONS (29)
  - Pain [Unknown]
  - Incision site pain [Unknown]
  - Feeling cold [Unknown]
  - Colitis [Recovering/Resolving]
  - Haemorrhage [Unknown]
  - Off label use [Unknown]
  - Hair growth abnormal [Recovered/Resolved]
  - Urinary tract infection [Not Recovered/Not Resolved]
  - Oxygen saturation abnormal [Unknown]
  - Fatigue [Unknown]
  - Anal fistula [Unknown]
  - Vaginal discharge [Unknown]
  - Contusion [Unknown]
  - Chills [Unknown]
  - Infected fistula [Unknown]
  - Abscess [Unknown]
  - Incontinence [Not Recovered/Not Resolved]
  - Condition aggravated [Not Recovered/Not Resolved]
  - Poor venous access [Unknown]
  - Arthralgia [Unknown]
  - Pyrexia [Unknown]
  - Clostridium difficile infection [Recovering/Resolving]
  - Vaginal fistula [Not Recovered/Not Resolved]
  - Vaginal flatulence [Unknown]
  - Disease recurrence [Recovering/Resolving]
  - Therapeutic response unexpected [Recovered/Resolved]
  - Drug level increased [Not Recovered/Not Resolved]
  - Anal fissure [Not Recovered/Not Resolved]
  - Dehydration [Unknown]

NARRATIVE: CASE EVENT DATE: 20170206
